FAERS Safety Report 18010147 (Version 1)
Quarter: 2020Q3

REPORT INFORMATION
  Report Type: Spontaneous
  Country: SE (occurrence: SE)
  Receive Date: 20200710
  Receipt Date: 20200710
  Transmission Date: 20201103
  Serious: Yes (Hospitalization)
  Sender: FDA-Public Use
  Company Number: NVSC2020SE191349

PATIENT
  Age: 44 Year
  Sex: Female
  Weight: 70 kg

DRUGS (3)
  1. PANOCOD [Concomitant]
     Active Substance: ACETAMINOPHEN\CODEINE PHOSPHATE
     Indication: PRODUCT USED FOR UNKNOWN INDICATION
     Dosage: UNK
     Route: 065
     Dates: start: 201906
  2. KETOGAN [Concomitant]
     Indication: PRODUCT USED FOR UNKNOWN INDICATION
     Dosage: UNK
     Route: 065
     Dates: start: 201905
  3. GABAPENTIN. [Suspect]
     Active Substance: GABAPENTIN
     Indication: NEURALGIA
     Dosage: UNK (3 KAPSLAR 3 GGR DAGLIGEN, BESV?R UPPSTOD VID UTTRAPPNING (V?RST VID 50?100 MG/DAG)
     Route: 065
     Dates: start: 201902

REACTIONS (14)
  - Eye irritation [Recovering/Resolving]
  - Nightmare [Recovering/Resolving]
  - Vision blurred [Recovering/Resolving]
  - Feeling abnormal [Recovering/Resolving]
  - Hypnopompic hallucination [Recovering/Resolving]
  - Insomnia [Recovering/Resolving]
  - Hyperhidrosis [Recovering/Resolving]
  - Tremor [Recovering/Resolving]
  - Anxiety [Recovering/Resolving]
  - Akathisia [Recovering/Resolving]
  - Drug withdrawal syndrome [Recovering/Resolving]
  - Formication [Recovering/Resolving]
  - Visual impairment [Recovering/Resolving]
  - Memory impairment [Recovering/Resolving]

NARRATIVE: CASE EVENT DATE: 2020
